FAERS Safety Report 22386748 (Version 1)
Quarter: 2023Q2

REPORT INFORMATION
  Report Type: Spontaneous
  Country: US (occurrence: US)
  Receive Date: 20230531
  Receipt Date: 20230531
  Transmission Date: 20230722
  Serious: No
  Sender: FDA-Public Use
  Company Number: US-TOLMAR, INC.-23US041092

PATIENT
  Age: 7 Year

DRUGS (1)
  1. FENSOLVI [Suspect]
     Active Substance: LEUPROLIDE ACETATE
     Indication: Product used for unknown indication
     Dosage: 45 MILLIGRAM
     Dates: start: 20230516

REACTIONS (3)
  - Product administration error [Unknown]
  - Incorrect dose administered [Unknown]
  - Syringe issue [Unknown]

NARRATIVE: CASE EVENT DATE: 20230516
